FAERS Safety Report 5907729-4 (Version None)
Quarter: 2008Q3

REPORT INFORMATION
  Report Type: 
  Country: None (occurrence: None)
  Receive Date: 20080929
  Receipt Date: 20080915
  Transmission Date: 20090109
  Serious: Yes (Hospitalization)
  Sender: FDA-Public Use
  Company Number: 1000001061

PATIENT
  Age: 84 Year
  Sex: Female

DRUGS (11)
  1. CITALOPRAM HYDROBROMIDE [Suspect]
     Dosage: 20 MG (20 MG, 1 IN 1 D), ORAL
     Route: 048
     Dates: start: 20080716, end: 20080724
  2. DEROXAT (20 MILLIGRAM) [Suspect]
     Dosage: 40 MG (20 MG, 2 IN 1 D), ORAL
     Route: 048
     Dates: start: 20080716, end: 20080722
  3. PROPOXYPHENE HCL AND ACETAMINOPHEN [Suspect]
     Dosage: 3 DOSAGE FORMS (1 DOSAGE FORMS, 3 IN 1 D), ORAL
     Route: 048
     Dates: start: 20080716, end: 20080725
  4. STILNOX (10 MILLIGRAM, TABLETS) [Suspect]
     Dosage: 10 MG (10 MG, 1 IN 1 D), ORAL
     Route: 048
     Dates: start: 20080715, end: 20080723
  5. STRESAM (50 MILLIGRAM) [Suspect]
     Dosage: 50 MG (50 MG, 1 IN 1 D)
     Dates: start: 20080716, end: 20080724
  6. TENORMIN [Concomitant]
  7. CALCIDOSE [Concomitant]
  8. CORVASAL [Concomitant]
  9. DIAMICRON [Concomitant]
  10. LERCAN [Concomitant]
  11. SPECIAFOLDINE [Concomitant]

REACTIONS (3)
  - AGITATION [None]
  - FALL [None]
  - HALLUCINATION [None]
